FAERS Safety Report 8771359 (Version 5)
Quarter: 2013Q3

REPORT INFORMATION
  Report Type: Spontaneous
  Country: CA (occurrence: CA)
  Receive Date: 20120906
  Receipt Date: 20130716
  Transmission Date: 20140515
  Serious: Yes (Other)
  Sender: FDA-Public Use
  Company Number: CA-GLAXOSMITHKLINE-A0975826A

PATIENT
  Age: 52 Year
  Sex: Female
  Weight: 62 kg

DRUGS (2)
  1. TYKERB [Suspect]
     Indication: BREAST CANCER METASTATIC
     Dosage: 1250MG PER DAY
     Route: 048
     Dates: start: 201109, end: 201303
  2. XELODA [Suspect]
     Indication: HER-2 POSITIVE BREAST CANCER
     Dosage: 1650MG TWICE PER DAY
     Route: 065
     Dates: start: 201101

REACTIONS (9)
  - Palmar-plantar erythrodysaesthesia syndrome [Recovering/Resolving]
  - Dry skin [Recovered/Resolved]
  - Skin fissures [Recovered/Resolved]
  - Localised infection [Recovered/Resolved]
  - Diarrhoea [Recovered/Resolved]
  - Fatigue [Recovering/Resolving]
  - Radiotherapy [Unknown]
  - Erythema [Unknown]
  - Drug ineffective [Unknown]
